FAERS Safety Report 5053745-7 (Version None)
Quarter: 2006Q3

REPORT INFORMATION
  Report Type: 
  Country: None (occurrence: None)
  Receive Date: 20060718
  Receipt Date: 20060705
  Transmission Date: 20061208
  Serious: Yes (Hospitalization)
  Sender: FDA-Public Use
  Company Number: 2006AP03074

PATIENT
  Age: 18022 Day
  Sex: Male
  Weight: 52.8 kg

DRUGS (8)
  1. IRESSA [Suspect]
     Indication: NASOPHARYNGEAL CANCER
     Route: 048
     Dates: start: 20060509, end: 20060608
  2. THYMOL GARGLE [Concomitant]
     Indication: MUCOSAL INFLAMMATION
     Route: 061
     Dates: start: 20060523, end: 20060606
  3. MORPHINE SULFATE [Concomitant]
     Indication: BACK PAIN
     Route: 048
     Dates: start: 20060523
  4. HYDROXYGINE [Concomitant]
     Indication: PRURITUS
     Route: 048
     Dates: start: 20060523, end: 20060606
  5. CLINDAMYCIN [Concomitant]
     Indication: RASH
     Route: 061
     Dates: start: 20060523, end: 20060606
  6. AQUEOUS CREAM [Concomitant]
     Indication: DRY SKIN
     Route: 061
     Dates: start: 20060523, end: 20060606
  7. SENNA [Concomitant]
     Indication: CONSTIPATION
     Route: 048
     Dates: start: 20060606, end: 20060610
  8. MULTI-VITAMIN [Concomitant]
     Indication: MEDICAL DIET
     Route: 048
     Dates: start: 20060606, end: 20060624

REACTIONS (6)
  - ASTHENIA [None]
  - DECREASED APPETITE [None]
  - DIARRHOEA [None]
  - DIZZINESS [None]
  - NAUSEA [None]
  - VOMITING [None]
